FAERS Safety Report 25637814 (Version 2)
Quarter: 2025Q4

REPORT INFORMATION
  Report Type: Spontaneous
  Country: JP (occurrence: JP)
  Receive Date: 20250804
  Receipt Date: 20251001
  Transmission Date: 20260118
  Serious: Yes (Other)
  Sender: ABBVIE
  Company Number: JP-ABBVIE-6395207

PATIENT
  Age: 32 Year
  Sex: Female

DRUGS (4)
  1. FLUOROMETHOLONE [Suspect]
     Active Substance: FLUOROMETHOLONE
     Indication: Chalazion
     Route: 047
  2. HUMIRA [Suspect]
     Active Substance: ADALIMUMAB
     Indication: Uveitis
     Route: 058
  3. CYCLOSPORINE [Suspect]
     Active Substance: CYCLOSPORINE
     Indication: Intraocular pressure increased
     Route: 047
  4. BETAMETHASONE [Concomitant]
     Active Substance: BETAMETHASONE
     Indication: Product used for unknown indication
     Dosage: 0.1 %
     Route: 047

REACTIONS (4)
  - Chalazion [Recovering/Resolving]
  - Therapeutic product effect decreased [Unknown]
  - Adverse drug reaction [Unknown]
  - Drug ineffective [Unknown]
